FAERS Safety Report 14574870 (Version 1)
Quarter: 2018Q1

REPORT INFORMATION
  Report Type: Spontaneous
  Country: US (occurrence: US)
  Receive Date: 20180227
  Receipt Date: 20180227
  Transmission Date: 20180509
  Serious: Yes (Other)
  Sender: FDA-Public Use
  Company Number: US-ROCHE-1980938

PATIENT
  Age: 66 Year
  Sex: Female
  Weight: 88.98 kg

DRUGS (5)
  1. DANAZOL. [Concomitant]
     Active Substance: DANAZOL
  2. HYDROCHLOROTHIAZIDE. [Concomitant]
     Active Substance: HYDROCHLOROTHIAZIDE
     Route: 065
  3. XOLAIR [Suspect]
     Active Substance: OMALIZUMAB
     Indication: CHRONIC SPONTANEOUS URTICARIA
     Route: 065
     Dates: start: 201508
  4. METOPROLOL. [Concomitant]
     Active Substance: METOPROLOL
     Route: 065
  5. XOLAIR [Suspect]
     Active Substance: OMALIZUMAB
     Dosage: 2 SHOTS EVERY 6 WEEKS
     Route: 065
     Dates: start: 2016

REACTIONS (9)
  - Sinus disorder [Unknown]
  - Headache [Recovered/Resolved]
  - Swelling [Unknown]
  - Dizziness [Not Recovered/Not Resolved]
  - Urticaria [Unknown]
  - Breast cancer [Unknown]
  - Pruritus [Unknown]
  - Fatigue [Not Recovered/Not Resolved]
  - Anxiety [Unknown]

NARRATIVE: CASE EVENT DATE: 20170101
